FAERS Safety Report 18769532 (Version 1)
Quarter: 2021Q1

REPORT INFORMATION
  Report Type: Spontaneous
  Country: FR (occurrence: FR)
  Receive Date: 20210121
  Receipt Date: 20210121
  Transmission Date: 20210419
  Serious: Yes (Hospitalization)
  Sender: FDA-Public Use
  Company Number: FR-BAYER-2021-022501

PATIENT
  Age: 70 Year
  Sex: Male
  Weight: 80 kg

DRUGS (13)
  1. TACROLIMUS MONOHYDRATE [Suspect]
     Active Substance: TACROLIMUS
     Indication: PROPHYLAXIS AGAINST TRANSPLANT REJECTION
     Dosage: 10 MG, QD
     Route: 048
     Dates: start: 201912
  2. BACTRIM [Suspect]
     Active Substance: SULFAMETHOXAZOLE\TRIMETHOPRIM
     Indication: INFECTION
     Dosage: UNK
     Route: 048
     Dates: end: 20200214
  3. ATORVASTATIN [Concomitant]
     Active Substance: ATORVASTATIN
  4. CIFLOX [Suspect]
     Active Substance: CIPROFLOXACIN
     Indication: INFECTION
     Dosage: 1000 MG, QD
     Route: 042
     Dates: start: 20200214
  5. CLOXACILLIN [Suspect]
     Active Substance: CLOXACILLIN
     Indication: INFECTION
     Dosage: 3 G, QD
     Route: 042
     Dates: start: 20200115, end: 20200225
  6. INSULINE GLARGINE [Concomitant]
     Active Substance: INSULIN GLARGINE
  7. BISOPROLOL FUMARATE. [Concomitant]
     Active Substance: BISOPROLOL FUMARATE
  8. INSULINE ASPARTE [Concomitant]
     Active Substance: INSULIN ASPART
  9. CEFTAZIDIME. [Suspect]
     Active Substance: CEFTAZIDIME
     Indication: INFECTION
     Dosage: 3 G, QD
     Route: 042
     Dates: start: 20200215, end: 20200226
  10. ASPEGIC BABY [Concomitant]
     Active Substance: ASPIRIN DL-LYSINE\GLYCINE
     Dosage: UNK
  11. CELLCEPT [Suspect]
     Active Substance: MYCOPHENOLATE MOFETIL\MYCOPHENOLATE MOFETIL HYDROCHLORIDE
     Indication: PROPHYLAXIS AGAINST TRANSPLANT REJECTION
     Dosage: 2 DF, QD
     Route: 048
     Dates: start: 201912, end: 20200217
  12. LANSOPRAZOLE. [Concomitant]
     Active Substance: LANSOPRAZOLE
     Dosage: UNK
  13. VALGANCICLOVIR. [Concomitant]
     Active Substance: VALGANCICLOVIR

REACTIONS (2)
  - Agranulocytosis [Recovered/Resolved]
  - Neutropenia [Recovered/Resolved]

NARRATIVE: CASE EVENT DATE: 20200212
